FAERS Safety Report 8646178 (Version 2)
Quarter: 2013Q2

REPORT INFORMATION
  Report Type: Spontaneous
  Country: US (occurrence: US)
  Receive Date: 20120702
  Receipt Date: 20130522
  Transmission Date: 20140414
  Serious: No
  Sender: FDA-Public Use
  Company Number: US-ASTRAZENECA-2012SE41039

PATIENT
  Age: 52 Year
  Sex: Female

DRUGS (7)
  1. CRESTOR [Suspect]
     Route: 048
     Dates: start: 20110506
  2. AMOXICILLIN [Concomitant]
  3. CORTISPORIN [Concomitant]
  4. ASPIRIN [Concomitant]
  5. NASONEX [Concomitant]
  6. VITAMIN E [Concomitant]
  7. SINGULAIR [Concomitant]

REACTIONS (5)
  - Anxiety [Unknown]
  - Bronchitis [Unknown]
  - Nasopharyngitis [Unknown]
  - Hypercholesterolaemia [Unknown]
  - Rhinitis allergic [Unknown]
